FAERS Safety Report 26205418 (Version 1)
Quarter: 2025Q4

REPORT INFORMATION
  Report Type: Report from Study
  Country: CA (occurrence: CA)
  Receive Date: 20251228
  Receipt Date: 20251228
  Transmission Date: 20260118
  Serious: Yes (Hospitalization, Other)
  Sender: ABBVIE
  Company Number: CA-ABBVIE-6604040

PATIENT
  Age: 57 Year
  Sex: Female

DRUGS (7)
  1. SKYRIZI [Suspect]
     Active Substance: RISANKIZUMAB-RZAA
     Indication: Crohn^s disease
     Dosage: FORM STRENGTH: 360MG/2.4ML?INJECT 360 MG SUBCUTANEOU SLY AT WEEK 12 AND EVERY 8 WEEKS ?THEREAFTER...
     Route: 058
     Dates: start: 20250604, end: 20251017
  2. PREDNISONE [Concomitant]
     Active Substance: PREDNISONE
     Indication: Product used for unknown indication
  3. VITAMIN B1 [Concomitant]
     Active Substance: THIAMINE HYDROCHLORIDE
     Indication: Product used for unknown indication
  4. VITAMIN B12 [Concomitant]
     Active Substance: CYANOCOBALAMIN
     Indication: Product used for unknown indication
  5. VITAMIN C [Concomitant]
     Active Substance: ASCORBIC ACID
     Indication: Product used for unknown indication
  6. VITAMIN D [Concomitant]
     Active Substance: VITAMIN D NOS
     Indication: Product used for unknown indication
  7. ZINC [Concomitant]
     Active Substance: ZINC
     Indication: Product used for unknown indication

REACTIONS (14)
  - Electrolyte imbalance [Unknown]
  - Muscle spasms [Unknown]
  - Haemoglobin decreased [Unknown]
  - Blood creatinine increased [Unknown]
  - Blood urea increased [Unknown]
  - Acute kidney injury [Not Recovered/Not Resolved]
  - Metabolic disorder [Not Recovered/Not Resolved]
  - Drug ineffective [Unknown]
  - Crohn^s disease [Not Recovered/Not Resolved]
  - Fatigue [Unknown]
  - Asthenia [Unknown]
  - Paraesthesia [Unknown]
  - Hypocalcaemia [Not Recovered/Not Resolved]
  - Hypomagnesaemia [Not Recovered/Not Resolved]

NARRATIVE: CASE EVENT DATE: 20250101
